FAERS Safety Report 19165597 (Version 4)
Quarter: 2021Q4

REPORT INFORMATION
  Report Type: Report from Study
  Country: US (occurrence: US)
  Receive Date: 20210421
  Receipt Date: 20211027
  Transmission Date: 20220303
  Serious: Yes (Hospitalization, Disabling)
  Sender: FDA-Public Use
  Company Number: NVSC2021US078879

PATIENT
  Age: 59 Year
  Sex: Female

DRUGS (1)
  1. ENTRESTO [Suspect]
     Active Substance: SACUBITRIL\VALSARTAN
     Indication: Cardiac failure
     Dosage: 0.5 DF, BID (24/26 MG)
     Route: 048
     Dates: start: 2018

REACTIONS (14)
  - COVID-19 [Recovered/Resolved]
  - Asthenia [Unknown]
  - Ill-defined disorder [Unknown]
  - Cardiac dysfunction [Unknown]
  - Malaise [Recovered/Resolved]
  - Weight fluctuation [Recovered/Resolved]
  - Osteoarthritis [Unknown]
  - Joint injury [Unknown]
  - Weight decreased [Unknown]
  - Muscle spasms [Unknown]
  - Sciatica [Unknown]
  - Fatigue [Not Recovered/Not Resolved]
  - Fall [Unknown]
  - Product dose omission issue [Recovered/Resolved]

NARRATIVE: CASE EVENT DATE: 20180101
